FAERS Safety Report 11365403 (Version 1)
Quarter: 2015Q3

REPORT INFORMATION
  Report Type: Spontaneous
  Country: US (occurrence: US)
  Receive Date: 20150811
  Receipt Date: 20150811
  Transmission Date: 20151125
  Serious: No
  Sender: FDA-Public Use
  Company Number: US-ASTRAZENECA-2015SE74800

PATIENT
  Age: 23468 Day
  Sex: Male
  Weight: 72.6 kg

DRUGS (10)
  1. SENSA [Concomitant]
     Indication: INFREQUENT BOWEL MOVEMENTS
     Dates: start: 2008
  2. CYMBALTA [Concomitant]
     Active Substance: DULOXETINE HYDROCHLORIDE
     Dates: start: 2008
  3. THEOPHYLLINE [Concomitant]
     Active Substance: THEOPHYLLINE ANHYDROUS
     Indication: PRODUCT USED FOR UNKNOWN INDICATION
     Dosage: TWO TIMES A DAY
     Dates: start: 2008
  4. TUDORZA PRESSAIR [Suspect]
     Active Substance: ACLIDINIUM BROMIDE
     Indication: CHRONIC OBSTRUCTIVE PULMONARY DISEASE
     Route: 055
     Dates: start: 2008, end: 20150728
  5. OXYCONTIN [Concomitant]
     Active Substance: OXYCODONE HYDROCHLORIDE
     Indication: PAIN
     Dosage: 15 MG EVERY SIX HOURS AS REQUIRED
     Dates: start: 2008
  6. FLOMAX [Concomitant]
     Active Substance: TAMSULOSIN HYDROCHLORIDE
     Indication: OEDEMA
     Dosage: DAILY
     Dates: start: 2008
  7. MORPHINE SULFATE. [Concomitant]
     Active Substance: MORPHINE SULFATE
     Indication: LUNG DISORDER
     Route: 048
     Dates: start: 201411
  8. ADVAIR HFA [Concomitant]
     Active Substance: FLUTICASONE PROPIONATE\SALMETEROL XINAFOATE
     Indication: CHRONIC OBSTRUCTIVE PULMONARY DISEASE
     Dosage: 500/50 ONE PUFF TWO TIMES A DAY
     Route: 055
     Dates: start: 2008
  9. MUCINEX [Concomitant]
     Active Substance: GUAIFENESIN
     Indication: CATARRH
     Dosage: TWO TIMES A DAY
     Dates: start: 2008
  10. LASIX [Concomitant]
     Active Substance: FUROSEMIDE
     Indication: OEDEMA
     Dosage: ONCE DAILY AS NEEDED
     Dates: start: 2008

REACTIONS (3)
  - Product quality issue [Unknown]
  - Anxiety [Unknown]
  - Drug dose omission [Not Recovered/Not Resolved]

NARRATIVE: CASE EVENT DATE: 201411
